FAERS Safety Report 21284412 (Version 2)
Quarter: 2023Q2

REPORT INFORMATION
  Report Type: Spontaneous
  Country: US (occurrence: US)
  Receive Date: 20220902
  Receipt Date: 20230405
  Transmission Date: 20230722
  Serious: Yes (Life-Threatening)
  Sender: FDA-Public Use
  Company Number: US-AMGEN-USASP2022150486

PATIENT
  Age: 43 Year
  Sex: Male

DRUGS (2)
  1. PROLIA [Suspect]
     Active Substance: DENOSUMAB
     Indication: Prostate cancer metastatic
     Route: 065
  2. PROLIA [Suspect]
     Active Substance: DENOSUMAB
     Indication: Osteoporosis

REACTIONS (5)
  - Hypophosphataemia [Recovering/Resolving]
  - Fibroblast growth factor 23 increased [Recovering/Resolving]
  - Hyperphosphaturia [Recovering/Resolving]
  - Blood parathyroid hormone increased [Recovering/Resolving]
  - Hypocalcaemia [Recovering/Resolving]
